FAERS Safety Report 8967937 (Version 1)
Quarter: 2012Q4

REPORT INFORMATION
  Report Type: 
  Country: US (occurrence: US)
  Receive Date: 20121218
  Receipt Date: 20121218
  Transmission Date: 20130627
  Serious: No
  Sender: FDA-Public Use
  Company Number: US-GLAXOSMITHKLINE-A0991127A

PATIENT
  Age: 64 Year
  Sex: Female

DRUGS (10)
  1. COREG CR [Suspect]
     Indication: EJECTION FRACTION DECREASED
     Dosage: 80MG Per day
     Route: 048
     Dates: start: 20120826
  2. QUINAPRIL [Concomitant]
  3. SPIRONOLACTONE [Concomitant]
  4. LASIX [Concomitant]
  5. PILOCARPINE [Concomitant]
  6. CLONAZEPAM [Concomitant]
  7. PREDNISONE [Concomitant]
  8. IBUPROFEN [Concomitant]
  9. NEURONTIN [Concomitant]
  10. XANAX [Concomitant]

REACTIONS (4)
  - Tachycardia [Recovered/Resolved]
  - Palpitations [Recovered/Resolved]
  - Headache [Recovered/Resolved]
  - Blood pressure increased [Recovered/Resolved]
